FAERS Safety Report 4688972-1 (Version None)
Quarter: 2005Q2

REPORT INFORMATION
  Report Type: 
  Country: None (occurrence: None)
  Receive Date: 20050613
  Receipt Date: 20050310
  Transmission Date: 20051028
  Serious: Yes (Hospitalization, Disabling)
  Sender: FDA-Public Use
  Company Number: US-MERCK-0503USA01898

PATIENT
  Age: 58 Year
  Sex: Male
  Weight: 102 kg

DRUGS (6)
  1. VIOXX [Suspect]
     Indication: ARTHRALGIA
     Route: 048
     Dates: start: 20020201, end: 20031129
  2. VIOXX [Suspect]
     Route: 048
     Dates: start: 20020201, end: 20031129
  3. VIOXX [Suspect]
     Indication: GOUT
     Route: 048
     Dates: start: 20020201, end: 20031129
  4. VIOXX [Suspect]
     Route: 048
     Dates: start: 20020201, end: 20031129
  5. ZESTRIL [Concomitant]
     Indication: HYPERTENSION
     Route: 048
     Dates: start: 19900101
  6. ZESTRIL [Concomitant]
     Route: 048
     Dates: start: 20041119

REACTIONS (25)
  - ACUTE MYOCARDIAL INFARCTION [None]
  - ANGINA PECTORIS [None]
  - ANTERIOR SPINAL ARTERY SYNDROME [None]
  - ANXIETY DISORDER [None]
  - ARTHRALGIA [None]
  - ARTHROPATHY [None]
  - ASTHENIA [None]
  - CARDIAC FAILURE CONGESTIVE [None]
  - CONTUSION [None]
  - CORONARY ARTERY ATHEROSCLEROSIS [None]
  - CORONARY ARTERY DISEASE [None]
  - CORONARY ARTERY OCCLUSION [None]
  - DEPRESSION [None]
  - DIABETES MELLITUS [None]
  - DYSPEPSIA [None]
  - EMOTIONAL DISTRESS [None]
  - FATIGUE [None]
  - HYPOTENSION [None]
  - LETHARGY [None]
  - MOTOR DYSFUNCTION [None]
  - MUSCULOSKELETAL CHEST PAIN [None]
  - MYOCARDIAL INFARCTION [None]
  - OEDEMA PERIPHERAL [None]
  - PNEUMONIA [None]
  - SPINAL OSTEOARTHRITIS [None]
